FAERS Safety Report 24941017 (Version 1)
Quarter: 2025Q1

REPORT INFORMATION
  Report Type: Spontaneous
  Country: CN (occurrence: CN)
  Receive Date: 20250207
  Receipt Date: 20250207
  Transmission Date: 20250408
  Serious: Yes (Hospitalization, Other)
  Sender: MACLEODS
  Company Number: CN-MACLEODS PHARMA-MAC2025051494

PATIENT

DRUGS (2)
  1. POTASSIUM CHLORIDE [Suspect]
     Active Substance: POTASSIUM CHLORIDE
     Indication: Hypokalaemia
     Dosage: 10% SOLUTION OF KCL (30 ML)
     Route: 042
     Dates: start: 202302, end: 202302
  2. SODIUM CHLORIDE [Concomitant]
     Active Substance: SODIUM CHLORIDE
     Indication: Product used for unknown indication
     Dosage: 10% SOLUTION OF KCL (30 ML)
     Route: 042
     Dates: start: 202302, end: 202302

REACTIONS (4)
  - Skin necrosis [Recovering/Resolving]
  - Injection site phlebitis [Recovering/Resolving]
  - Injection site extravasation [Recovering/Resolving]
  - Skin ulcer [Recovering/Resolving]

NARRATIVE: CASE EVENT DATE: 20230101
